FAERS Safety Report 6761870-5 (Version None)
Quarter: 2010Q2

REPORT INFORMATION
  Report Type: 
  Country: None (occurrence: None)
  Receive Date: 20100609
  Receipt Date: 20100607
  Transmission Date: 20101027
  Serious: Yes (Life-Threatening, Hospitalization, Other)
  Sender: FDA-Public Use
  Company Number: PHHY2010IE06308

PATIENT
  Sex: Female
  Weight: 62 kg

DRUGS (3)
  1. CLOZARIL [Suspect]
     Indication: SCHIZOPHRENIA
     Dosage: 100 MG QAM; 200 MG QHS
     Dates: start: 20011127, end: 20100101
  2. HALOPERIDOL [Concomitant]
     Indication: PSYCHOTIC DISORDER
     Dosage: UNK
     Dates: start: 20100210, end: 20100211
  3. ELTROXIN ^GLAXO^ [Concomitant]
     Indication: HYPOTHYROIDISM
     Dosage: UNK
     Route: 048
     Dates: start: 20010601

REACTIONS (15)
  - ANXIETY [None]
  - BLADDER REPAIR [None]
  - BLOOD UREA INCREASED [None]
  - CHEST PAIN [None]
  - FLUID INTAKE REDUCED [None]
  - GENERAL PHYSICAL HEALTH DETERIORATION [None]
  - HYPOPHAGIA [None]
  - LIVER FUNCTION TEST ABNORMAL [None]
  - MALAISE [None]
  - MENTAL IMPAIRMENT [None]
  - PNEUMONIA ASPIRATION [None]
  - SEPSIS [None]
  - URINARY BLADDER RUPTURE [None]
  - URINE ELECTROLYTES INCREASED [None]
  - WHITE BLOOD CELL COUNT INCREASED [None]
